FAERS Safety Report 9253933 (Version 1)
Quarter: 2013Q2

REPORT INFORMATION
  Report Type: Spontaneous
  Country: US (occurrence: US)
  Receive Date: 20130425
  Receipt Date: 20130425
  Transmission Date: 20140414
  Serious: Yes (Hospitalization)
  Sender: FDA-Public Use
  Company Number: US-BAYER-2013-051201

PATIENT
  Age: 21 Year
  Sex: Female
  Weight: 45.35 kg

DRUGS (3)
  1. YAZ [Suspect]
  2. YASMIN [Suspect]
  3. ORTHO-NOVUM 7/7/7 [Concomitant]

REACTIONS (1)
  - Pulmonary embolism [None]
